FAERS Safety Report 9432724 (Version 1)
Quarter: 2013Q3

REPORT INFORMATION
  Report Type: Spontaneous
  Country: US (occurrence: US)
  Receive Date: 20130731
  Receipt Date: 20130731
  Transmission Date: 20140515
  Serious: No
  Sender: FDA-Public Use
  Company Number: US-BAYER-2013-092082

PATIENT
  Age: 83 Year
  Sex: Female

DRUGS (2)
  1. CIPRO [Suspect]
     Indication: LUNG INFECTION PSEUDOMONAL
     Dosage: UNK
  2. PREDNISONE [Concomitant]
     Indication: ARTHRITIS

REACTIONS (2)
  - Nervousness [None]
  - Paraesthesia oral [None]
